FAERS Safety Report 4454649-0 (Version None)
Quarter: 2004Q3

REPORT INFORMATION
  Report Type: 
  Country: None (occurrence: None)
  Receive Date: 20040826
  Receipt Date: 20040616
  Transmission Date: 20050211
  Serious: Yes (Hospitalization)
  Sender: FDA-Public Use
  Company Number: 236626

PATIENT
  Age: 52 Year
  Sex: Male
  Weight: 77.1 kg

DRUGS (5)
  1. NOVOLIN N [Suspect]
     Indication: DIABETES MELLITUS INSULIN-DEPENDENT
     Dosage: 8 IU, QD, SUBCUTANEOUS
     Route: 058
     Dates: start: 20010101
  2. NOVOLIN R [Suspect]
     Indication: DIABETES MELLITUS INSULIN-DEPENDENT
     Dosage: 8 IU, QID, SUBCUTANEOUS
     Route: 058
     Dates: start: 20010101
  3. PAXIL [Concomitant]
  4. OFLOXACIN [Concomitant]
  5. ERYTHROMYCIN [Concomitant]

REACTIONS (1)
  - BLOOD GLUCOSE INCREASED [None]
